FAERS Safety Report 7930786-0 (Version None)
Quarter: 2011Q4

REPORT INFORMATION
  Report Type: 
  Country: None (occurrence: None)
  Receive Date: 20111121
  Receipt Date: 20111117
  Transmission Date: 20120403
  Serious: Yes (Hospitalization)
  Sender: FDA-Public Use
  Company Number: FR-GLAXOSMITHKLINE-B0708135A

PATIENT
  Sex: Female

DRUGS (10)
  1. ALLOPURINOL [Suspect]
     Indication: PRODUCT USED FOR UNKNOWN INDICATION
     Route: 048
     Dates: end: 20110114
  2. SIMVASTATIN [Suspect]
     Indication: PRODUCT USED FOR UNKNOWN INDICATION
     Route: 048
     Dates: end: 20110114
  3. OMEPRAZOLE [Suspect]
     Indication: PRODUCT USED FOR UNKNOWN INDICATION
     Route: 048
     Dates: end: 20110114
  4. ESCITALOPRAM OXALATE [Suspect]
     Indication: PRODUCT USED FOR UNKNOWN INDICATION
     Dosage: 15MG PER DAY
     Route: 048
     Dates: end: 20110114
  5. MEMANTINE [Suspect]
     Indication: PRODUCT USED FOR UNKNOWN INDICATION
     Dosage: 20MG PER DAY
     Route: 048
     Dates: end: 20110114
  6. AUGMENTIN [Suspect]
     Indication: LUNG DISORDER
     Dosage: 2G PER DAY
     Route: 048
     Dates: start: 20110110, end: 20110114
  7. ISOSORBIDE DINITRATE [Concomitant]
     Indication: PRODUCT USED FOR UNKNOWN INDICATION
     Dosage: 1UNIT PER DAY
     Route: 065
  8. AMLODIPINE BESYLATE [Concomitant]
     Route: 065
  9. SECTRAL [Concomitant]
     Route: 065
  10. EXELON [Suspect]
     Indication: PRODUCT USED FOR UNKNOWN INDICATION
     Dosage: 4.6MG PER DAY
     Route: 062
     Dates: end: 20110114

REACTIONS (7)
  - HYPERNATRAEMIA [None]
  - CYTOLYTIC HEPATITIS [None]
  - CONFUSIONAL STATE [None]
  - AKATHISIA [None]
  - THROMBOCYTOPENIA [None]
  - DECREASED APPETITE [None]
  - DEHYDRATION [None]
